FAERS Safety Report 20471506 (Version 4)
Quarter: 2022Q2

REPORT INFORMATION
  Report Type: Spontaneous
  Country: US (occurrence: US)
  Receive Date: 20220214
  Receipt Date: 20220406
  Transmission Date: 20220721
  Serious: No
  Sender: FDA-Public Use
  Company Number: US-PFIZER INC-202200238973

PATIENT
  Age: 72 Year
  Sex: Female
  Weight: 67.12 kg

DRUGS (6)
  1. PAXLOVID [Suspect]
     Active Substance: NIRMATRELVIR\RITONAVIR
     Indication: COVID-19
     Dosage: UNK
     Dates: start: 20220209, end: 20220214
  2. PREDNISONE [Concomitant]
     Active Substance: PREDNISONE
     Dosage: 5 MG
  3. OMEPRAZOLE [Concomitant]
     Active Substance: OMEPRAZOLE
     Dosage: 20 MG
  4. BACLOFEN [Concomitant]
     Active Substance: BACLOFEN
     Dosage: UNK
  5. GABAPENTIN [Concomitant]
     Active Substance: GABAPENTIN
     Dosage: UNK
  6. LEVOTHYROXINE [Concomitant]
     Active Substance: LEVOTHYROXINE
     Dosage: UNK

REACTIONS (6)
  - Confusional state [Not Recovered/Not Resolved]
  - Somnolence [Recovered/Resolved]
  - Taste disorder [Recovered/Resolved]
  - Eating disorder [Recovered/Resolved]
  - Myalgia [Recovered/Resolved]
  - Product dose omission issue [Unknown]

NARRATIVE: CASE EVENT DATE: 20220201
